FAERS Safety Report 20220090 (Version 1)
Quarter: 2021Q4

REPORT INFORMATION
  Report Type: Spontaneous
  Country: None (occurrence: DE)
  Receive Date: 20211222
  Receipt Date: 20211222
  Transmission Date: 20220304
  Serious: Yes (Hospitalization)
  Sender: FDA-Public Use
  Company Number: DE-Ascend Therapeutics US, LLC-2123297

PATIENT
  Age: 54 Year
  Sex: Female
  Weight: 53 kg

DRUGS (6)
  1. ESTROGEL [Suspect]
     Active Substance: ESTRADIOL
     Indication: Product used for unknown indication
     Route: 003
  2. ESTROGEL [Suspect]
     Active Substance: ESTRADIOL
  3. PROGESTERONE [Suspect]
     Active Substance: PROGESTERONE
     Route: 048
  4. ESTRADIOL [Suspect]
     Active Substance: ESTRADIOL
     Route: 003
  5. PRASTERONE [Suspect]
     Active Substance: PRASTERONE
     Route: 048
  6. Pantoprazole(PANTOPRAZOLE) [Concomitant]
     Route: 048

REACTIONS (6)
  - Decreased appetite [Unknown]
  - Insomnia [Unknown]
  - Dyspepsia [Unknown]
  - Restlessness [Unknown]
  - Abdominal pain [Unknown]
  - Weight decreased [Unknown]
